FAERS Safety Report 6386763-7 (Version None)
Quarter: 2009Q4

REPORT INFORMATION
  Report Type: 
  Country: None (occurrence: None)
  Receive Date: 20091002
  Receipt Date: 20091001
  Transmission Date: 20100525
  Serious: Yes (Life-Threatening)
  Sender: FDA-Public Use
  Company Number: A0809609A

PATIENT
  Sex: Female
  Weight: 59.1 kg

DRUGS (4)
  1. AVAMYS [Suspect]
     Indication: DRUG USE FOR UNKNOWN INDICATION
     Route: 045
  2. FLONASE [Concomitant]
     Route: 065
  3. ANTI-HYPERTENSIVE [Concomitant]
     Route: 065
  4. UNKNOWN ANTI-DEPRESSANT [Concomitant]
     Route: 065

REACTIONS (6)
  - ANGIOEDEMA [None]
  - HYPERSENSITIVITY [None]
  - LIP SWELLING [None]
  - PHARYNGEAL OEDEMA [None]
  - SWOLLEN TONGUE [None]
  - THROAT IRRITATION [None]
